FAERS Safety Report 9974548 (Version 1)
Quarter: 2014Q1

REPORT INFORMATION
  Report Type: Report from Study
  Country: US (occurrence: US)
  Receive Date: 20140306
  Receipt Date: 20140306
  Transmission Date: 20141002
  Serious: No
  Sender: FDA-Public Use
  Company Number: US-ABBVIE-13P-163-1159133-00

PATIENT
  Age: 66 Year
  Sex: Male

DRUGS (2)
  1. HUMIRA [Suspect]
     Indication: ANKYLOSING SPONDYLITIS
     Dates: start: 201201
  2. HUMIRA [Suspect]
     Dates: start: 201304

REACTIONS (3)
  - Injection site haemorrhage [Recovering/Resolving]
  - Injection site pain [Recovering/Resolving]
  - Injection site papule [Recovering/Resolving]
